FAERS Safety Report 10081007 (Version 1)
Quarter: 2014Q2

REPORT INFORMATION
  Report Type: Spontaneous
  Country: US (occurrence: US)
  Receive Date: 20140416
  Receipt Date: 20140416
  Transmission Date: 20141212
  Serious: No
  Sender: FDA-Public Use
  Company Number: US-PFIZER INC-2014101017

PATIENT
  Age: 57 Year
  Sex: Female
  Weight: 179.14 kg

DRUGS (5)
  1. CELEBREX [Suspect]
     Indication: ARTHROPATHY
     Dosage: 200 MG, UNK
     Route: 048
  2. CELEBREX [Suspect]
     Indication: INTERVERTEBRAL DISC DEGENERATION
  3. CELEBREX [Suspect]
     Indication: ARTHRITIS
  4. LANTUS [Concomitant]
     Indication: DIABETES MELLITUS
     Dosage: UNK
  5. GLIPIZIDE [Concomitant]
     Indication: DIABETES MELLITUS
     Dosage: UNK

REACTIONS (1)
  - Drug ineffective [Unknown]
